FAERS Safety Report 9140639 (Version 1)
Quarter: 2013Q1

REPORT INFORMATION
  Report Type: Spontaneous
  Country: BR (occurrence: BR)
  Receive Date: 20130305
  Receipt Date: 20130305
  Transmission Date: 20140127
  Serious: Yes (Hospitalization)
  Sender: FDA-Public Use
  Company Number: BR-ABBOTT-13P-020-1055887-00

PATIENT
  Sex: Male
  Weight: 78 kg

DRUGS (4)
  1. HUMIRA [Suspect]
     Indication: ANKYLOSING SPONDYLITIS
     Route: 058
     Dates: start: 20120316, end: 201212
  2. HUMIRA [Suspect]
     Route: 058
     Dates: start: 201302
  3. CRESTOR [Concomitant]
     Indication: BLOOD CHOLESTEROL
     Route: 048
     Dates: start: 2009
  4. CITONEURIN [Concomitant]
     Indication: NERVOUS SYSTEM DISORDER
     Route: 048
     Dates: start: 2007

REACTIONS (4)
  - Food poisoning [Recovered/Resolved]
  - Gastroenteritis [Recovered/Resolved]
  - Intestinal haemorrhage [Recovered/Resolved]
  - Therapeutic response decreased [Unknown]
